FAERS Safety Report 6843857-7 (Version None)
Quarter: 2010Q3

REPORT INFORMATION
  Report Type: 
  Country: None (occurrence: None)
  Receive Date: 20100714
  Receipt Date: 20100714
  Transmission Date: 20110219
  Serious: Yes (Hospitalization)
  Sender: FDA-Public Use
  Company Number: None

PATIENT
  Age: 68 Year
  Sex: Male
  Weight: 88.905 kg

DRUGS (9)
  1. RITUXIMAB 375MG/M2:720 MG [Suspect]
     Indication: DIFFUSE LARGE B-CELL LYMPHOMA
     Dosage: EVERY 2 WEEKS
  2. VINCRISTINE [Suspect]
  3. ADRIAMYCIN PFS [Suspect]
  4. CYTOXAN [Suspect]
  5. PRED 100QDX5 [Suspect]
  6. COLACE [Concomitant]
  7. ULTRAM [Concomitant]
  8. BACTRIM [Concomitant]
  9. COMPAZINE [Concomitant]

REACTIONS (3)
  - BRAIN NATRIURETIC PEPTIDE INCREASED [None]
  - DYSPNOEA [None]
  - TROPONIN INCREASED [None]
